FAERS Safety Report 4873706-8 (Version None)
Quarter: 2006Q1

REPORT INFORMATION
  Report Type: 
  Country: None (occurrence: None)
  Receive Date: 20060104
  Receipt Date: 20060104
  Transmission Date: 20060701
  Serious: Yes (Life-Threatening, Hospitalization)
  Sender: FDA-Public Use
  Company Number: None

PATIENT
  Age: 15 Year
  Sex: Male
  Weight: 66 kg

DRUGS (3)
  1. XANAX [Suspect]
  2. MUSCLE RELAXANT [Suspect]
  3. MARIJUANA [Concomitant]

REACTIONS (3)
  - DRUG ABUSER [None]
  - MULTIPLE DRUG OVERDOSE [None]
  - ROAD TRAFFIC ACCIDENT [None]
